FAERS Safety Report 8495533-5 (Version None)
Quarter: 2012Q3

REPORT INFORMATION
  Report Type: 
  Country: None (occurrence: None)
  Receive Date: 20120709
  Receipt Date: 20120702
  Transmission Date: 20120928
  Serious: Yes (Hospitalization)
  Sender: FDA-Public Use
  Company Number: IL-B.I. PHARMACEUTICALS,INC./RIDGEFIELD-2012-AP-00451RI

PATIENT
  Age: 90 Year
  Sex: Female

DRUGS (1)
  1. PRADAXA [Suspect]

REACTIONS (2)
  - HAEMATOMA [None]
  - RENAL IMPAIRMENT [None]
